FAERS Safety Report 20123645 (Version 1)
Quarter: 2021Q4

REPORT INFORMATION
  Report Type: Spontaneous
  Country: US (occurrence: US)
  Receive Date: 20211129
  Receipt Date: 20211129
  Transmission Date: 20220303
  Serious: Yes (Death, Life-Threatening, Hospitalization)
  Sender: FDA-Public Use
  Company Number: US-STRIDES ARCOLAB LIMITED-2021SP030353

PATIENT
  Age: 69 Year
  Sex: Male

DRUGS (3)
  1. MYCOPHENOLATE MOFETIL [Suspect]
     Active Substance: MYCOPHENOLATE MOFETIL
     Indication: Renal transplant
     Dosage: 750 MILLIGRAM, BID (STOP DATE: FEB 2020)
     Route: 065
  2. PREDNISOLONE [Suspect]
     Active Substance: PREDNISOLONE
     Indication: Renal transplant
     Dosage: 10 MILLIGRAM PER DAY (STOP DATE: FEB 2020)
     Route: 065
  3. PREDNISOLONE [Suspect]
     Active Substance: PREDNISOLONE
     Dosage: 5 MILLIGRAM PER DAY, TAPERED (START DATE: FEB 2020)
     Route: 065

REACTIONS (6)
  - Respiratory failure [Fatal]
  - Phaeohyphomycosis [Fatal]
  - Cerebral fungal infection [Fatal]
  - Pneumonia fungal [Fatal]
  - Phaeohyphomycotic brain abscess [Fatal]
  - Vasogenic cerebral oedema [Unknown]

NARRATIVE: CASE EVENT DATE: 20200101
